FAERS Safety Report 9468573 (Version 1)
Quarter: 2013Q3

REPORT INFORMATION
  Report Type: Spontaneous
  Country: CN (occurrence: CN)
  Receive Date: 20130821
  Receipt Date: 20130821
  Transmission Date: 20140515
  Serious: Yes (Other)
  Sender: FDA-Public Use
  Company Number: CN-GLAXOSMITHKLINE-B0916560A

PATIENT
  Age: 48 Year
  Sex: Male
  Weight: 60 kg

DRUGS (2)
  1. HEPTODIN [Suspect]
     Indication: HEPATIC CANCER
     Route: 048
     Dates: start: 201206
  2. HEPSERA [Concomitant]
     Indication: HEPATIC CANCER
     Route: 048
     Dates: start: 201304

REACTIONS (1)
  - Hepatitis B [Recovered/Resolved]
